FAERS Safety Report 5406206-7 (Version None)
Quarter: 2007Q3

REPORT INFORMATION
  Report Type: 
  Country: None (occurrence: None)
  Receive Date: 20070806
  Receipt Date: 20070727
  Transmission Date: 20080115
  Serious: Yes (Hospitalization, Other)
  Sender: FDA-Public Use
  Company Number: PHHO2007AT01221

PATIENT
  Sex: Female
  Weight: 105 kg

DRUGS (11)
  1. LEPONEX [Suspect]
     Dosage: 50 MG DAILY
     Route: 048
     Dates: start: 20061004, end: 20061005
  2. LEPONEX [Suspect]
     Dosage: 100 MG DAILY
     Route: 048
     Dates: start: 20061005, end: 20061118
  3. ZOLDEM [Concomitant]
  4. DEPAKENE [Concomitant]
  5. AURORIX [Concomitant]
  6. LAMICTAL [Concomitant]
  7. SALAZOPYRIN [Concomitant]
  8. NEXIUM [Concomitant]
  9. CEVITOL [Concomitant]
  10. AVELOX [Concomitant]
  11. LASIX [Concomitant]

REACTIONS (4)
  - LEUKOPENIA [None]
  - LUNG ADENOCARCINOMA [None]
  - LUNG LOBECTOMY [None]
  - NEUTROPENIA [None]
